FAERS Safety Report 24444487 (Version 5)
Quarter: 2025Q2

REPORT INFORMATION
  Report Type: Spontaneous
  Country: CZ (occurrence: CZ)
  Receive Date: 20241016
  Receipt Date: 20250531
  Transmission Date: 20250716
  Serious: Yes (Other)
  Sender: CELLTRION
  Company Number: CZ-DEM-009042

PATIENT

DRUGS (51)
  1. RITUXIMAB [Suspect]
     Active Substance: RITUXIMAB
     Indication: Diffuse large B-cell lymphoma
     Dates: start: 202302, end: 2023
  2. RITUXIMAB [Suspect]
     Active Substance: RITUXIMAB
     Indication: Diffuse large B-cell lymphoma stage IV
     Dates: start: 202108, end: 202202
  3. RITUXIMAB [Suspect]
     Active Substance: RITUXIMAB
     Indication: Diffuse large B-cell lymphoma recurrent
  4. RITUXIMAB [Suspect]
     Active Substance: RITUXIMAB
     Indication: Metastases to pharynx
  5. RITUXIMAB [Suspect]
     Active Substance: RITUXIMAB
     Indication: Metastases to spleen
  6. RITUXIMAB [Suspect]
     Active Substance: RITUXIMAB
     Indication: Metastases to liver
  7. RITUXIMAB [Suspect]
     Active Substance: RITUXIMAB
     Indication: Metastases to lymph nodes
  8. RITUXIMAB [Suspect]
     Active Substance: RITUXIMAB
     Indication: Metastases to muscle
  9. RITUXIMAB [Suspect]
     Active Substance: RITUXIMAB
     Indication: Metastases to tonsils
  10. RITUXIMAB [Suspect]
     Active Substance: RITUXIMAB
     Indication: Metastases to abdominal wall
  11. ETOPOSIDE [Suspect]
     Active Substance: ETOPOSIDE
     Indication: Diffuse large B-cell lymphoma
     Dates: start: 202302, end: 2023
  12. ETOPOSIDE [Suspect]
     Active Substance: ETOPOSIDE
     Indication: Metastases to spleen
  13. ETOPOSIDE [Suspect]
     Active Substance: ETOPOSIDE
     Indication: Metastases to abdominal wall
  14. ETOPOSIDE [Suspect]
     Active Substance: ETOPOSIDE
     Indication: Diffuse large B-cell lymphoma recurrent
  15. ETOPOSIDE [Suspect]
     Active Substance: ETOPOSIDE
     Indication: Metastases to pharynx
  16. ETOPOSIDE [Suspect]
     Active Substance: ETOPOSIDE
     Indication: Metastases to tonsils
  17. ETOPOSIDE [Suspect]
     Active Substance: ETOPOSIDE
     Indication: Metastases to lymph nodes
  18. ETOPOSIDE [Suspect]
     Active Substance: ETOPOSIDE
     Indication: Metastases to muscle
  19. ETOPOSIDE [Suspect]
     Active Substance: ETOPOSIDE
     Indication: Metastases to liver
  20. ETOPOSIDE [Suspect]
     Active Substance: ETOPOSIDE
     Indication: Diffuse large B-cell lymphoma stage IV
  21. CISPLATIN [Suspect]
     Active Substance: CISPLATIN
     Indication: Diffuse large B-cell lymphoma
     Dates: start: 202302, end: 2023
  22. CISPLATIN [Suspect]
     Active Substance: CISPLATIN
     Indication: Metastases to abdominal wall
  23. CISPLATIN [Suspect]
     Active Substance: CISPLATIN
     Indication: Diffuse large B-cell lymphoma stage IV
  24. CISPLATIN [Suspect]
     Active Substance: CISPLATIN
     Indication: Metastases to pharynx
  25. CISPLATIN [Suspect]
     Active Substance: CISPLATIN
     Indication: Metastases to spleen
  26. CISPLATIN [Suspect]
     Active Substance: CISPLATIN
     Indication: Metastases to liver
  27. CISPLATIN [Suspect]
     Active Substance: CISPLATIN
     Indication: Metastases to muscle
  28. CISPLATIN [Suspect]
     Active Substance: CISPLATIN
     Indication: Metastases to tonsils
  29. CISPLATIN [Suspect]
     Active Substance: CISPLATIN
     Indication: Diffuse large B-cell lymphoma recurrent
  30. CISPLATIN [Suspect]
     Active Substance: CISPLATIN
     Indication: Metastases to lymph nodes
  31. DEXAMETHASONE [Suspect]
     Active Substance: DEXAMETHASONE
     Indication: Diffuse large B-cell lymphoma
     Dates: start: 202302
  32. CYTARABINE [Suspect]
     Active Substance: CYTARABINE
     Indication: Diffuse large B-cell lymphoma
     Dates: start: 202302, end: 2023
  33. CYTARABINE [Suspect]
     Active Substance: CYTARABINE
     Indication: Metastases to abdominal wall
  34. CYTARABINE [Suspect]
     Active Substance: CYTARABINE
     Indication: Metastases to pharynx
  35. CYTARABINE [Suspect]
     Active Substance: CYTARABINE
     Indication: Metastases to muscle
  36. CYTARABINE [Suspect]
     Active Substance: CYTARABINE
     Indication: Metastases to tonsils
  37. CYTARABINE [Suspect]
     Active Substance: CYTARABINE
     Indication: Metastases to liver
  38. CYTARABINE [Suspect]
     Active Substance: CYTARABINE
     Indication: Diffuse large B-cell lymphoma recurrent
  39. CYTARABINE [Suspect]
     Active Substance: CYTARABINE
     Indication: Metastases to spleen
  40. CYTARABINE [Suspect]
     Active Substance: CYTARABINE
     Indication: Diffuse large B-cell lymphoma stage IV
  41. CYTARABINE [Suspect]
     Active Substance: CYTARABINE
     Indication: Metastases to lymph nodes
  42. DEXAMETHASONE [Suspect]
     Active Substance: DEXAMETHASONE
     Indication: Diffuse large B-cell lymphoma
     Dates: start: 202302, end: 2023
  43. DEXAMETHASONE [Suspect]
     Active Substance: DEXAMETHASONE
     Indication: Metastases to spleen
  44. DEXAMETHASONE [Suspect]
     Active Substance: DEXAMETHASONE
     Indication: Diffuse large B-cell lymphoma recurrent
  45. DEXAMETHASONE [Suspect]
     Active Substance: DEXAMETHASONE
     Indication: Metastases to muscle
  46. DEXAMETHASONE [Suspect]
     Active Substance: DEXAMETHASONE
     Indication: Metastases to liver
  47. DEXAMETHASONE [Suspect]
     Active Substance: DEXAMETHASONE
     Indication: Metastases to lymph nodes
  48. DEXAMETHASONE [Suspect]
     Active Substance: DEXAMETHASONE
     Indication: Metastases to tonsils
  49. DEXAMETHASONE [Suspect]
     Active Substance: DEXAMETHASONE
     Indication: Diffuse large B-cell lymphoma stage IV
  50. DEXAMETHASONE [Suspect]
     Active Substance: DEXAMETHASONE
     Indication: Metastases to abdominal wall
  51. DEXAMETHASONE [Suspect]
     Active Substance: DEXAMETHASONE
     Indication: Metastases to pharynx

REACTIONS (4)
  - Circulatory collapse [Unknown]
  - Gastroenteritis clostridial [Unknown]
  - Product use in unapproved indication [Unknown]
  - Product use issue [Unknown]

NARRATIVE: CASE EVENT DATE: 20230101
